FAERS Safety Report 11585569 (Version 1)
Quarter: 2015Q4

REPORT INFORMATION
  Report Type: Report from Study
  Country: US (occurrence: US)
  Receive Date: 20151001
  Receipt Date: 20151001
  Transmission Date: 20160304
  Serious: Yes (Other)
  Sender: FDA-Public Use
  Company Number: US-GILEAD-2015-0174825

PATIENT
  Age: 72 Year
  Sex: Female

DRUGS (1)
  1. RANOLAZINE [Suspect]
     Active Substance: RANOLAZINE
     Indication: ANGINA PECTORIS
     Dosage: 500 MG, UNK
     Route: 048

REACTIONS (13)
  - Myocardial infarction [Unknown]
  - Chronic kidney disease [Unknown]
  - Chronic obstructive pulmonary disease [Unknown]
  - Chest discomfort [Unknown]
  - Coronary artery disease [Unknown]
  - Sleep disorder [Unknown]
  - Arthralgia [Unknown]
  - Hypercholesterolaemia [Unknown]
  - Anaemia [Unknown]
  - Headache [Unknown]
  - Cardiac failure congestive [Unknown]
  - Hypertension [Unknown]
  - Fatigue [Unknown]
